FAERS Safety Report 5098621-9 (Version None)
Quarter: 2006Q3

REPORT INFORMATION
  Report Type: 
  Country: None (occurrence: None)
  Receive Date: 20060906
  Receipt Date: 20060317
  Transmission Date: 20061208
  Serious: No
  Sender: FDA-Public Use
  Company Number: US-GLAXOSMITHKLINE-A0598031A

PATIENT
  Age: 36 Year
  Sex: Male

DRUGS (5)
  1. REQUIP [Suspect]
     Indication: RESTLESS LEGS SYNDROME
     Dosage: .5MG PER DAY
     Route: 048
     Dates: start: 20060313
  2. METFORMIN HCL [Concomitant]
  3. BUSPIRONE HCL [Concomitant]
  4. ALPRAZOLAM [Concomitant]
  5. PROTONIX [Concomitant]

REACTIONS (2)
  - NERVOUSNESS [None]
  - TREMOR [None]
